FAERS Safety Report 10686256 (Version 1)
Quarter: 2014Q4

REPORT INFORMATION
  Report Type: Spontaneous
  Country: FR (occurrence: FR)
  Receive Date: 20141231
  Receipt Date: 20141231
  Transmission Date: 20150529
  Serious: Yes (Disabling)
  Sender: FDA-Public Use
  Company Number: FR-PFIZER INC-2014358385

PATIENT
  Age: 46 Year
  Sex: Male

DRUGS (12)
  1. MEROPENEM. [Concomitant]
     Active Substance: MEROPENEM
  2. BISOCE [Concomitant]
     Active Substance: BISOPROLOL
     Dosage: 5 MG, UNK
  3. CALCIPARINE [Concomitant]
     Active Substance: HEPARIN CALCIUM
  4. HYDROCORTISONE. [Concomitant]
     Active Substance: HYDROCORTISONE
  5. VFEND [Suspect]
     Active Substance: VORICONAZOLE
     Indication: MENINGITIS CRYPTOCOCCAL
     Dosage: 350 MG, 2X/DAY
     Route: 048
     Dates: start: 20140924
  6. INEXIUM /01479302/ [Concomitant]
     Active Substance: ESOMEPRAZOLE MAGNESIUM
     Dosage: 40 MG, UNK
  7. XANAX [Concomitant]
     Active Substance: ALPRAZOLAM
     Dosage: 0.50 MG, UNK
  8. DEROXAT [Concomitant]
     Active Substance: PAROXETINE HYDROCHLORIDE
     Dosage: 20 MG, UNK
  9. AMBISOME [Suspect]
     Active Substance: AMPHOTERICIN B
     Indication: MENINGITIS CRYPTOCOCCAL
     Dosage: 170 MG, 1X/DAY
     Route: 042
     Dates: start: 20140924, end: 20141208
  10. COLIMYCINE [Concomitant]
     Active Substance: COLISTIMETHATE SODIUM
  11. VANCOMYCINE SANDOZ [Suspect]
     Active Substance: VANCOMYCIN
     Indication: ANTIBIOTIC PROPHYLAXIS
     Dosage: 1 G, 1X/DAY
     Route: 042
     Dates: start: 20141012, end: 20141017
  12. AMIKACINE MYLAN [Suspect]
     Active Substance: AMIKACIN
     Indication: PSEUDOMONAL BACTERAEMIA
     Dosage: 1.5 G, 1X/DAY
     Route: 042
     Dates: start: 20141003, end: 20141017

REACTIONS (1)
  - Ototoxicity [Not Recovered/Not Resolved]

NARRATIVE: CASE EVENT DATE: 20141119
